FAERS Safety Report 6383895-4 (Version None)
Quarter: 2009Q4

REPORT INFORMATION
  Report Type: 
  Country: None (occurrence: None)
  Receive Date: 20091001
  Receipt Date: 20090928
  Transmission Date: 20100525
  Serious: Yes (Hospitalization, Disabling, Other)
  Sender: FDA-Public Use
  Company Number: CA-ABBOTT-09P-028-0593851-00

PATIENT
  Sex: Female

DRUGS (6)
  1. HUMIRA [Suspect]
     Indication: CROHN'S DISEASE
     Dosage: LOADING DOSE
     Route: 058
     Dates: start: 20090811, end: 20090811
  2. HUMIRA [Suspect]
     Route: 058
     Dates: start: 20090801, end: 20090801
  3. HUMIRA [Suspect]
     Route: 058
     Dates: start: 20090901
  4. NORTRYPTILINE [Concomitant]
     Indication: ANXIETY
     Dosage: 1 CO QHS
     Route: 048
     Dates: start: 20090801
  5. NORTRYPTILINE [Concomitant]
     Indication: DEPRESSION
  6. LANSOPRAZOLE [Concomitant]
     Indication: DRUG USE FOR UNKNOWN INDICATION

REACTIONS (18)
  - ABDOMINAL PAIN UPPER [None]
  - AMNESIA [None]
  - ANXIETY [None]
  - CONTUSION [None]
  - DEPRESSION [None]
  - DIARRHOEA [None]
  - EPILEPSY [None]
  - FAECES HARD [None]
  - GRAND MAL CONVULSION [None]
  - HAEMATOCHEZIA [None]
  - HAEMORRHOIDS [None]
  - HYPOAESTHESIA ORAL [None]
  - LOSS OF CONSCIOUSNESS [None]
  - SINUSITIS [None]
  - SPEECH DISORDER [None]
  - STOMATITIS [None]
  - TONGUE BITING [None]
  - TREMOR [None]
